FAERS Safety Report 11121748 (Version 2)
Quarter: 2015Q2

REPORT INFORMATION
  Report Type: Spontaneous
  Country: US (occurrence: US)
  Receive Date: 20150519
  Receipt Date: 20150526
  Transmission Date: 20150821
  Serious: Yes (Other)
  Sender: FDA-Public Use
  Company Number: US-ASTRAZENECA-2015SE44020

PATIENT
  Age: 26949 Day
  Sex: Male
  Weight: 99.3 kg

DRUGS (16)
  1. BYETTA [Suspect]
     Active Substance: EXENATIDE
     Indication: TYPE 2 DIABETES MELLITUS
     Route: 058
     Dates: start: 20140805
  2. AMARYL [Concomitant]
     Active Substance: GLIMEPIRIDE
     Route: 048
     Dates: start: 20140722
  3. METOCLOPRAMIDE. [Concomitant]
     Active Substance: METOCLOPRAMIDE
     Route: 048
     Dates: start: 20140805
  4. GEMZAR [Concomitant]
     Active Substance: GEMCITABINE HYDROCHLORIDE
     Route: 042
     Dates: start: 20141211
  5. PERCOCET [Concomitant]
     Active Substance: ACETAMINOPHEN\OXYCODONE HYDROCHLORIDE
     Dosage: 5/325 EVERY 4 HOURS AS NEEDED.
     Route: 048
     Dates: start: 20140805
  6. ERYTHROMYCIN. [Concomitant]
     Active Substance: ERYTHROMYCIN
     Dates: start: 20140805
  7. ZENPEP [Concomitant]
     Active Substance: PANCRELIPASE\PANCRELIPASE AMYLASE\PANCRELIPASE LIPASE\PANCRELIPASE PROTEASE
     Dosage: 25000 UNITS- 136000 UNITS -85000 UNITS THREE TIMES A DAY.
     Route: 048
     Dates: start: 20140805
  8. BYETTA [Suspect]
     Active Substance: EXENATIDE
     Indication: TYPE 2 DIABETES MELLITUS
     Route: 065
     Dates: start: 20140721
  9. METFORMIN [Concomitant]
     Active Substance: METFORMIN HYDROCHLORIDE
     Route: 048
     Dates: start: 20140919
  10. NEXIUM [Concomitant]
     Active Substance: ESOMEPRAZOLE MAGNESIUM
     Route: 048
     Dates: start: 20140912
  11. HYDROMORPHONE [Concomitant]
     Active Substance: HYDROMORPHONE
     Dates: start: 20140725
  12. OXYCODONE [Concomitant]
     Active Substance: OXYCODONE
     Dosage: DAILY
     Route: 048
     Dates: start: 20140908
  13. AMOXICILLIN-CLAVULANATE [Concomitant]
     Active Substance: AMOXICILLIN\CLAVULANIC ACID
     Dosage: 875 MG - 125 MG EVERY 12 HOURS.
     Route: 048
     Dates: start: 20140805
  14. BYETTA [Suspect]
     Active Substance: EXENATIDE
     Indication: TYPE 2 DIABETES MELLITUS
     Route: 065
     Dates: start: 20110420, end: 201407
  15. BYETTA [Suspect]
     Active Substance: EXENATIDE
     Indication: TYPE 2 DIABETES MELLITUS
     Dosage: 10 MCG/ 0.04 ML TWICE DAILY WITH MEALS.
     Route: 058
     Dates: start: 20110420, end: 20130526
  16. ZOCOR [Concomitant]
     Active Substance: SIMVASTATIN
     Dosage: DAILY
     Route: 048
     Dates: start: 20140908

REACTIONS (6)
  - Adenocarcinoma gastric [Unknown]
  - Pancreatic mass [Unknown]
  - Jaundice cholestatic [Unknown]
  - Adenocarcinoma pancreas [Unknown]
  - Metastases to lymph nodes [Unknown]
  - Pancreatitis chronic [Unknown]

NARRATIVE: CASE EVENT DATE: 20140711
